FAERS Safety Report 8292425-1 (Version None)
Quarter: 2012Q2

REPORT INFORMATION
  Report Type: 
  Country: None (occurrence: None)
  Receive Date: 20120417
  Receipt Date: 20120412
  Transmission Date: 20120825
  Serious: Yes (Other)
  Sender: FDA-Public Use
  Company Number: JP-PFIZER INC-2012076648

PATIENT
  Age: 76 Year
  Sex: Male

DRUGS (5)
  1. MOBIC [Concomitant]
     Dosage: UNK
  2. DICLOFENAC SODIUM [Concomitant]
     Dosage: UNK
  3. LYRICA [Suspect]
     Dosage: 75 MG, 2X/DAY
     Route: 048
     Dates: start: 20120324, end: 20120325
  4. ZOLPIDEM [Concomitant]
     Dosage: UNK
  5. MUCOSTA [Concomitant]
     Dosage: UNK

REACTIONS (1)
  - ANAPHYLACTIC SHOCK [None]
